FAERS Safety Report 4932778-2 (Version None)
Quarter: 2006Q1

REPORT INFORMATION
  Report Type: 
  Country: None (occurrence: None)
  Receive Date: 20060302
  Receipt Date: 20060302
  Transmission Date: 20060701
  Serious: Yes (Other)
  Sender: FDA-Public Use
  Company Number: None

PATIENT
  Age: 91 Year
  Sex: Female
  Weight: 72.1 kg

DRUGS (11)
  1. FENTANYL [Suspect]
     Indication: BACK PAIN
     Dosage: APPLY Q 3 DAYS
  2. FENTANYL [Suspect]
     Indication: OSTEOARTHRITIS
     Dosage: APPLY Q 3 DAYS
  3. FENTANYL [Suspect]
     Indication: PAIN
     Dosage: APPLY Q 3 DAYS
  4. LEXAPRO [Concomitant]
  5. INDERAL LA [Concomitant]
  6. TRAZODONE [Concomitant]
  7. RELAFEN [Concomitant]
  8. FUROSEMIDE [Concomitant]
  9. POTASSIUM CHLORIDE [Concomitant]
  10. ASPIRIN [Concomitant]
  11. VITAMIN [Concomitant]

REACTIONS (2)
  - PAIN [None]
  - PHARMACEUTICAL PRODUCT COMPLAINT [None]
